FAERS Safety Report 4470097-1 (Version None)
Quarter: 2004Q3

REPORT INFORMATION
  Report Type: 
  Country: None (occurrence: None)
  Receive Date: 20040910
  Receipt Date: 20040701
  Transmission Date: 20050211
  Serious: No
  Sender: FDA-Public Use
  Company Number: 2004222622US

PATIENT
  Age: 57 Year
  Sex: Female
  Weight: 92.1 kg

DRUGS (2)
  1. BEXTRA [Suspect]
     Indication: MUSCLE STRAIN
     Dosage: 10 MG, QD, ORAL
     Route: 048
     Dates: start: 20040630
  2. LORTAB [Concomitant]

REACTIONS (1)
  - PAIN EXACERBATED [None]
